FAERS Safety Report 9089072 (Version 1)
Quarter: 2013Q1

REPORT INFORMATION
  Report Type: Spontaneous
  Country: MX (occurrence: MX)
  Receive Date: 20130201
  Receipt Date: 20130201
  Transmission Date: 20140127
  Serious: Yes (Other)
  Sender: FDA-Public Use
  Company Number: PHHY2013MX008573

PATIENT
  Age: 72 Year
  Sex: Female

DRUGS (3)
  1. EXFORGE [Suspect]
     Indication: HYPERTENSION
     Dosage: 1 DF, DAILY
     Route: 048
     Dates: start: 201211
  2. EXFORGE [Suspect]
     Dosage: 2 DF, DAILY
  3. SELOKEN [Concomitant]
     Dosage: 1 DF, UNK

REACTIONS (1)
  - Hepatic cirrhosis [Unknown]
